FAERS Safety Report 5372827-3 (Version None)
Quarter: 2007Q2

REPORT INFORMATION
  Report Type: 
  Country: None (occurrence: None)
  Receive Date: 20070620
  Receipt Date: 20060901
  Transmission Date: 20071010
  Serious: No
  Sender: FDA-Public Use
  Company Number: 462113

PATIENT
  Age: 70 Year
  Sex: Female

DRUGS (14)
  1. INTERFERON ALFA-2A (INTERFERON ALFA-2A) [Suspect]
     Indication: HEPATITIS C
     Dates: start: 20060130, end: 20060808
  2. RIBAVIRIN [Suspect]
     Indication: HEPATITIS C
     Dates: start: 20060130, end: 20060808
  3. PROCRIT [Suspect]
     Indication: ANAEMIA
     Dosage: 40000 UNIT 1 PER WEEK SUBCUTANEOUS
     Route: 058
     Dates: start: 20060515
  4. ATENOLOL [Concomitant]
  5. HYDROCHLOROTHIAZIDE [Concomitant]
  6. POTASSIUM (POTASSIUM NOS) [Concomitant]
  7. ESTRADIOL [Concomitant]
  8. PRILOSEC [Concomitant]
  9. WARFARIN SODIUM [Concomitant]
  10. GLYSET (MIGLITOL) [Concomitant]
  11. GLIPIZIDE [Concomitant]
  12. COZAAR [Concomitant]
  13. NOVOLIN R [Concomitant]
  14. NOVOLIN N (INSULIN (SUSPENSION), ISOPHANE) [Concomitant]

REACTIONS (1)
  - ANAEMIA [None]
